FAERS Safety Report 15608687 (Version 1)
Quarter: 2018Q4

REPORT INFORMATION
  Report Type: Spontaneous
  Country: US (occurrence: US)
  Receive Date: 20181112
  Receipt Date: 20181112
  Transmission Date: 20190205
  Serious: No
  Sender: FDA-Public Use
  Company Number: US-SA-2018SA307811

PATIENT
  Sex: Female

DRUGS (3)
  1. DIPHENHYDRAMINE HYDROCHLORIDE. [Suspect]
     Active Substance: DIPHENHYDRAMINE HYDROCHLORIDE
  2. ARAVA [Suspect]
     Active Substance: LEFLUNOMIDE
     Indication: PRODUCT USED FOR UNKNOWN INDICATION
  3. METHOTREXATE. [Suspect]
     Active Substance: METHOTREXATE
     Indication: PRODUCT USED FOR UNKNOWN INDICATION
     Dosage: UNK

REACTIONS (3)
  - Anxiety [Unknown]
  - Blood pressure increased [Unknown]
  - Mouth ulceration [Unknown]
